FAERS Safety Report 4551401-2 (Version None)
Quarter: 2005Q1

REPORT INFORMATION
  Report Type: 
  Country: None (occurrence: None)
  Receive Date: 20050111
  Receipt Date: 20050111
  Transmission Date: 20050727
  Serious: Yes (Hospitalization)
  Sender: FDA-Public Use
  Company Number: None

PATIENT
  Sex: Male
  Weight: 95.3 kg

DRUGS (16)
  1. CARVEDILOL [Suspect]
     Indication: BLOOD PRESSURE
     Dosage: 12.5MG   BID   ORAL
     Route: 048
     Dates: start: 20041014, end: 20041109
  2. CARVEDILOL [Suspect]
     Indication: CARDIOVASCULAR DISORDER
     Dosage: 12.5MG   BID   ORAL
     Route: 048
     Dates: start: 20041014, end: 20041109
  3. ISOSORBIDE MONONITRATE [Suspect]
     Dosage: 30MG SA   DAILY   ORAL
     Route: 048
     Dates: start: 20041014, end: 20041109
  4. ACCU-CHEK COMFORT CV-GLUCOSE- TEST STRIP [Concomitant]
  5. CLOPIDOGREL BISULFATE [Concomitant]
  6. HEPARIN NA 100 UNIT/ML LOCK FLUSH SOLN [Concomitant]
  7. INSULIN NPH HUMAN 100 U/ML INJ NOVOLIN N [Concomitant]
  8. INSULIN REG HUMAN 100 U/ML INJ NOVOLIN R [Concomitant]
  9. METFORMIN HCL [Concomitant]
  10. NAPROXEN [Concomitant]
  11. NITROGLYCERIN [Concomitant]
  12. QUININE SULFATE [Concomitant]
  13. RANITIDINE HCL [Concomitant]
  14. SENNOSIDES [Concomitant]
  15. SIMVASTATIN [Concomitant]
  16. SODIUM CHLORIDE 0.9/BENZYL ALC 0.9% INJ [Concomitant]

REACTIONS (2)
  - DIZZINESS [None]
  - HYPOTENSION [None]
